FAERS Safety Report 17878892 (Version 1)
Quarter: 2020Q2

REPORT INFORMATION
  Report Type: Spontaneous
  Country: NL (occurrence: NL)
  Receive Date: 20200610
  Receipt Date: 20200610
  Transmission Date: 20200714
  Serious: Yes (Disabling, Other)
  Sender: FDA-Public Use
  Company Number: NL-ACCORD-184241

PATIENT
  Age: 70 Year
  Sex: Male

DRUGS (1)
  1. CARBIDOPA/LEVODOPA [Suspect]
     Active Substance: CARBIDOPA\LEVODOPA
     Indication: PARKINSON^S DISEASE
     Dosage: 100/25 MG FIVE TIMES DAILY, 150/37.5 MG FIVE TIMES DAILY

REACTIONS (2)
  - Parkinsonian gait [Recovering/Resolving]
  - Freezing phenomenon [Recovering/Resolving]
